FAERS Safety Report 23183875 (Version 1)
Quarter: 2023Q4

REPORT INFORMATION
  Report Type: Spontaneous
  Country: US (occurrence: US)
  Receive Date: 20231114
  Receipt Date: 20231114
  Transmission Date: 20240110
  Serious: No
  Sender: FDA-Public Use
  Company Number: US-Linical-38925

PATIENT
  Age: 34 Year
  Sex: Male

DRUGS (8)
  1. PHOTREXA VISCOUS [Suspect]
     Active Substance: RIBOFLAVIN 5^-PHOSPHATE SODIUM
     Indication: Keratoconus
     Dosage: RIGHT EYE
     Dates: start: 20230525, end: 20230525
  2. PHOTREXA [Suspect]
     Active Substance: RIBOFLAVIN 5^-PHOSPHATE SODIUM
     Indication: Keratoconus
     Dosage: RIGHT EYE
     Dates: start: 20230525, end: 20230525
  3. DEVICE [Suspect]
     Active Substance: DEVICE
     Indication: Keratoconus
     Dosage: RIGHT EYE
     Dates: start: 20230525, end: 20230525
  4. DEVICE [Suspect]
     Active Substance: DEVICE
     Indication: Product used for unknown indication
     Dates: start: 20230525, end: 20230529
  5. OFLOXACIN [Concomitant]
     Active Substance: OFLOXACIN
     Indication: Product used for unknown indication
     Dosage: AT THE END OF THE PROCEDURE
     Dates: start: 20230525
  6. OFLOXACIN [Concomitant]
     Active Substance: OFLOXACIN
     Indication: Product used for unknown indication
     Dosage: AS POST OPERATIVE MEDICATIONS
     Route: 061
  7. PREDNISOLONE [Concomitant]
     Active Substance: PREDNISOLONE
     Indication: Product used for unknown indication
     Dosage: AS POST OPERATIVE MEDICATIONS
     Route: 061
  8. Artificial tears [Concomitant]
     Indication: Product used for unknown indication

REACTIONS (5)
  - Fibrosis [Unknown]
  - Corneal opacity [Unknown]
  - Visual impairment [Unknown]
  - Corneal disorder [Unknown]
  - Corneal opacity [Unknown]

NARRATIVE: CASE EVENT DATE: 20230526
